FAERS Safety Report 9717632 (Version 4)
Quarter: 2014Q1

REPORT INFORMATION
  Report Type: Report from Study
  Country: US (occurrence: US)
  Receive Date: 20131127
  Receipt Date: 20140205
  Transmission Date: 20141002
  Serious: Yes (Hospitalization)
  Sender: FDA-Public Use
  Company Number: US-PFIZER INC-2013336464

PATIENT
  Age: 73 Year
  Sex: Male
  Weight: 72.7 kg

DRUGS (28)
  1. PF-04136309 [Suspect]
     Indication: PANCREATIC CARCINOMA
     Dosage: 500 MG, 2X/DAY
     Route: 048
     Dates: start: 20130930, end: 20131122
  2. IRINOTECAN HCL [Suspect]
     Indication: PANCREATIC CARCINOMA
     Dosage: 362 MG, UNK
     Dates: start: 20130930
  3. IRINOTECAN HCL [Suspect]
     Dosage: 294 MG, UNK
     Dates: start: 20131028
  4. IRINOTECAN HCL [Suspect]
     Dosage: 294 MG, UNK
     Dates: start: 20131111
  5. FLUOROURACIL [Suspect]
     Indication: PANCREATIC CARCINOMA
     Dosage: 800 MG, BOLUS
     Route: 040
     Dates: start: 20130930
  6. FLUOROURACIL [Suspect]
     Dosage: 4824 MG, CIVI PUMP
     Route: 041
     Dates: start: 20130930
  7. FLUOROURACIL [Suspect]
     Dosage: 627 MG, BOLUS
     Route: 040
     Dates: start: 20131028
  8. FLUOROURACIL [Suspect]
     Dosage: 4704 MG, CIVI PUMP
     Route: 041
     Dates: start: 20131028
  9. FLUOROURACIL [Suspect]
     Dosage: 627 MG, BOLUS
     Route: 040
     Dates: start: 20131111
  10. FLUOROURACIL [Suspect]
     Dosage: 4704 MG, CIVI PUMP
     Route: 041
     Dates: start: 20131111
  11. OXALIPLATIN [Suspect]
     Indication: PANCREATIC CARCINOMA
     Dosage: 170 MG, UNK
     Dates: start: 20130930
  12. OXALIPLATIN [Suspect]
     Dosage: 167 MG, UNK
     Dates: start: 20131028
  13. OXALIPLATIN [Suspect]
     Dosage: 167 MG, UNK
     Dates: start: 20131111
  14. LEUCOVORIN [Suspect]
     Indication: PANCREATIC CARCINOMA
     Dosage: 800 MG, UNK
     Dates: start: 20130930
  15. LEUCOVORIN [Suspect]
     Dosage: 784 MG, UNK
     Dates: start: 20131028
  16. LEUCOVORIN [Suspect]
     Dosage: 784 MG, UNK
     Dates: start: 20131111
  17. MARINOL [Concomitant]
  18. ALBUTEROL [Concomitant]
  19. ASPIRIN [Concomitant]
  20. ATORVASTATIN CALCIUM [Concomitant]
  21. NITROSTAT [Concomitant]
  22. CLOPIDOGREL BISULFATE [Concomitant]
  23. DRONABINOL [Concomitant]
  24. ENOXAPARIN SODIUM [Concomitant]
  25. HYDROCODONE-ACETAMINOPHEN [Concomitant]
  26. LOSARTAN POTASSIUM [Concomitant]
  27. SYMBICORT [Concomitant]
  28. TERAZOSIN [Concomitant]

REACTIONS (1)
  - Febrile neutropenia [Recovering/Resolving]
